FAERS Safety Report 23011527 (Version 3)
Quarter: 2023Q4

REPORT INFORMATION
  Report Type: Spontaneous
  Country: JP (occurrence: None)
  Receive Date: 20230929
  Receipt Date: 20231226
  Transmission Date: 20240109
  Serious: Yes (Life-Threatening, Hospitalization, Other)
  Sender: FDA-Public Use
  Company Number: 2023A222318

PATIENT
  Age: 87 Year
  Sex: Female
  Weight: 65 kg

DRUGS (7)
  1. ANDEXANET ALFA [Suspect]
     Active Substance: ANDEXANET ALFA
     Route: 042
     Dates: start: 20230629, end: 20230629
  2. HEPARIN [Concomitant]
     Active Substance: HEPARIN SODIUM
     Dosage: 300 UNITS/KG
  3. HEPARIN [Concomitant]
     Active Substance: HEPARIN SODIUM
     Dosage: 100 UNITS/KG
  4. ANTITHROMBIN III HUMAN [Concomitant]
     Active Substance: ANTITHROMBIN III HUMAN
     Dosage: 1000 UNITS
  5. NAFAMOSTAT MESYLATE [Concomitant]
     Active Substance: NAFAMOSTAT MESYLATE
     Dosage: 50 MG/H
  6. NAFAMOSTAT MESYLATE [Concomitant]
     Active Substance: NAFAMOSTAT MESYLATE
     Dosage: 30 MG/H
  7. PROTAMINE [Concomitant]
     Active Substance: PROTAMINE
     Dosage: 3 MG/KG

REACTIONS (1)
  - Heparin resistance [Unknown]
